FAERS Safety Report 23051010 (Version 3)
Quarter: 2024Q1

REPORT INFORMATION
  Report Type: Spontaneous
  Country: US (occurrence: US)
  Receive Date: 20231010
  Receipt Date: 20240304
  Transmission Date: 20240410
  Serious: No
  Sender: FDA-Public Use
  Company Number: US-SA-SAC20231005001080

PATIENT
  Age: 75 Year
  Sex: Female

DRUGS (46)
  1. DUPIXENT [Suspect]
     Active Substance: DUPILUMAB
     Indication: Dermatitis atopic
     Dosage: 600 MG, 1X
     Route: 058
  2. DUPIXENT [Suspect]
     Active Substance: DUPILUMAB
     Dosage: 300 MG, QOW
     Route: 058
     Dates: start: 20231003
  3. BETAMETHASONE DIPROPIONATE [Concomitant]
     Active Substance: BETAMETHASONE DIPROPIONATE
     Dosage: UNK
  4. BUSPIRONE [Concomitant]
     Active Substance: BUSPIRONE HYDROCHLORIDE
     Dosage: UNK
  5. BUSPIRONE [Concomitant]
     Active Substance: BUSPIRONE HYDROCHLORIDE
  6. CYCLOSPORINE [Concomitant]
     Active Substance: CYCLOSPORINE
     Dosage: UNK
  7. CYCLOSPORINE [Concomitant]
     Active Substance: CYCLOSPORINE
  8. EPINEPHRINE [Concomitant]
     Active Substance: EPINEPHRINE
     Dosage: UNK
  9. EPINEPHRINE [Concomitant]
     Active Substance: EPINEPHRINE
  10. ESTRADIOL [Concomitant]
     Active Substance: ESTRADIOL
     Dosage: UNK
  11. ESTRADIOL [Concomitant]
     Active Substance: ESTRADIOL
  12. FLUCONAZOLE [Concomitant]
     Active Substance: FLUCONAZOLE
     Dosage: UNK
  13. FLUCONAZOLE [Concomitant]
     Active Substance: FLUCONAZOLE
  14. NYSTATIN [Concomitant]
     Active Substance: NYSTATIN
     Dosage: UNK
  15. NYSTATIN [Concomitant]
     Active Substance: NYSTATIN
  16. PREDNISONE [Concomitant]
     Active Substance: PREDNISONE
     Dosage: UNK
  17. PREDNISONE [Concomitant]
     Active Substance: PREDNISONE
  18. PREGABALIN [Concomitant]
     Active Substance: PREGABALIN
     Dosage: UNK
  19. PREGABALIN [Concomitant]
     Active Substance: PREGABALIN
  20. ROPINIROLE [Concomitant]
     Active Substance: ROPINIROLE
     Dosage: UNK
  21. ROPINIROLE [Concomitant]
     Active Substance: ROPINIROLE
  22. TEMAZEPAM [Concomitant]
     Active Substance: TEMAZEPAM
     Dosage: UNK
  23. TEMAZEPAM [Concomitant]
     Active Substance: TEMAZEPAM
  24. TRIAZOLAM [Concomitant]
     Active Substance: TRIAZOLAM
     Dosage: UNK
  25. TRIAZOLAM [Concomitant]
     Active Substance: TRIAZOLAM
  26. XIFAXAN [Concomitant]
     Active Substance: RIFAXIMIN
     Dosage: UNK
  27. XIFAXAN [Concomitant]
     Active Substance: RIFAXIMIN
  28. XOLAIR [Concomitant]
     Active Substance: OMALIZUMAB
     Dosage: UNK
  29. XOLAIR [Concomitant]
     Active Substance: OMALIZUMAB
  30. ZOLPIDEM [Concomitant]
     Active Substance: ZOLPIDEM TARTRATE
     Dosage: UNK
  31. ZOLPIDEM [Concomitant]
     Active Substance: ZOLPIDEM TARTRATE
  32. FLUCONAZOLE [Concomitant]
     Active Substance: FLUCONAZOLE
     Dosage: UNK
  33. FLUCONAZOLE [Concomitant]
     Active Substance: FLUCONAZOLE
  34. HYDROXYZINE HYDROCHLORIDE [Concomitant]
     Active Substance: HYDROXYZINE HYDROCHLORIDE
     Dosage: UNK
  35. HYDROXYZINE HYDROCHLORIDE [Concomitant]
     Active Substance: HYDROXYZINE HYDROCHLORIDE
  36. LEVOTHYROXINE [Concomitant]
     Active Substance: LEVOTHYROXINE\LEVOTHYROXINE SODIUM
     Dosage: UNK
  37. LEVOTHYROXINE [Concomitant]
     Active Substance: LEVOTHYROXINE\LEVOTHYROXINE SODIUM
  38. LEVOTHYROXINE [Concomitant]
     Active Substance: LEVOTHYROXINE\LEVOTHYROXINE SODIUM
     Dosage: UNK
  39. LEVOTHYROXINE [Concomitant]
     Active Substance: LEVOTHYROXINE\LEVOTHYROXINE SODIUM
  40. METHYLPHENIDATE [Concomitant]
     Active Substance: METHYLPHENIDATE
     Dosage: UNK
  41. METHYLPHENIDATE [Concomitant]
     Active Substance: METHYLPHENIDATE
  42. MULTI WOMEN [Concomitant]
     Dosage: UNK
  43. OXYCODONE/APAP [Concomitant]
     Active Substance: ACETAMINOPHEN\OXYCODONE HYDROCHLORIDE
     Dosage: UNK
  44. XOLAIR [Concomitant]
     Active Substance: OMALIZUMAB
     Dosage: UNK
  45. METHYLPHENIDATE [Concomitant]
     Active Substance: METHYLPHENIDATE
  46. ESTRADIOL [Concomitant]
     Active Substance: ESTRADIOL

REACTIONS (10)
  - Sleep disorder [Not Recovered/Not Resolved]
  - Nasal congestion [Not Recovered/Not Resolved]
  - Impaired quality of life [Not Recovered/Not Resolved]
  - Asthma [Not Recovered/Not Resolved]
  - Sleep disorder due to a general medical condition [Not Recovered/Not Resolved]
  - Gastrointestinal bacterial infection [Not Recovered/Not Resolved]
  - Upper respiratory tract infection [Not Recovered/Not Resolved]
  - Pruritus [Unknown]
  - Hypersensitivity [Not Recovered/Not Resolved]
  - Rash [Not Recovered/Not Resolved]

NARRATIVE: CASE EVENT DATE: 20230901
